FAERS Safety Report 7900852-4 (Version None)
Quarter: 2011Q4

REPORT INFORMATION
  Report Type: 
  Country: None (occurrence: None)
  Receive Date: 20111108
  Receipt Date: 20111108
  Transmission Date: 20120403
  Serious: Yes (Death)
  Sender: FDA-Public Use
  Company Number: None

PATIENT
  Age: 67 Year
  Sex: Male
  Weight: 92.98 kg

DRUGS (1)
  1. PLAK VAK ORAL MOUTH WASH [Suspect]
     Indication: DENTAL DISORDER PROPHYLAXIS
     Dates: start: 20111002, end: 20111018

REACTIONS (5)
  - UNRESPONSIVE TO STIMULI [None]
  - HAEMORRHAGIC INFARCTION [None]
  - PNEUMONIA ASPIRATION [None]
  - EFFUSION [None]
  - ACUTE RESPIRATORY FAILURE [None]
